FAERS Safety Report 9604445 (Version 3)
Quarter: 2013Q4

REPORT INFORMATION
  Report Type: Spontaneous
  Country: IT (occurrence: IT)
  Receive Date: 20131008
  Receipt Date: 20131118
  Transmission Date: 20140711
  Serious: Yes (Hospitalization)
  Sender: FDA-Public Use
  Company Number: IT-SA-2013SA096126

PATIENT
  Age: 80 Year
  Sex: Male

DRUGS (10)
  1. LASITONE [Suspect]
     Indication: HYPERTENSION
     Dosage: 25 MG/32 MG HARD CAPS
     Route: 048
     Dates: start: 20120901, end: 20121113
  2. LASIX [Suspect]
     Indication: HYPERTENSION
     Route: 048
     Dates: start: 20120101, end: 20121113
  3. ENALAPRIL [Suspect]
     Indication: HYPERTENSION
     Route: 048
     Dates: start: 20120901, end: 20121113
  4. GEMFIBROZIL [Concomitant]
  5. ALLOPURINOL [Concomitant]
  6. CARVEDILOL [Concomitant]
  7. COUMADIN [Concomitant]
     Dosage: STRENGTH:5 MG
  8. TRINIPLAS [Concomitant]
     Route: 062
  9. MEMAC [Concomitant]
     Dosage: STRENGTH: 10 MG ?ORODISPERISBLE
  10. EFFERALGAN [Concomitant]
     Dosage: STRENGTH; 500MG

REACTIONS (2)
  - Presyncope [Recovered/Resolved]
  - Renal impairment [Recovered/Resolved]
